FAERS Safety Report 23664056 (Version 2)
Quarter: 2024Q2

REPORT INFORMATION
  Report Type: Spontaneous
  Country: US (occurrence: US)
  Receive Date: 20240322
  Receipt Date: 20240408
  Transmission Date: 20240715
  Serious: Yes (Other)
  Sender: FDA-Public Use
  Company Number: US-TAKEDA-2024TUS026718

PATIENT
  Sex: Female
  Weight: 68 kg

DRUGS (6)
  1. LIALDA [Suspect]
     Active Substance: MESALAMINE
     Indication: Colitis ulcerative
     Dosage: 1.2 GRAM, BID
     Route: 065
     Dates: start: 20231013, end: 202401
  2. LIALDA [Suspect]
     Active Substance: MESALAMINE
     Dosage: UNK UNK, BID
     Route: 048
  3. CITALOPRAM [Concomitant]
     Active Substance: CITALOPRAM\CITALOPRAM HYDROBROMIDE
     Indication: Depression
     Dosage: 10 MILLIGRAM, QD
     Route: 065
  4. MESALAMINE [Concomitant]
     Active Substance: MESALAMINE
     Indication: Colitis ulcerative
     Dosage: 1000 MILLIGRAM
     Route: 065
     Dates: start: 20230331, end: 20231006
  5. MESALAMINE [Concomitant]
     Active Substance: MESALAMINE
     Dosage: 1.2 GRAM, BID
     Route: 048
     Dates: start: 20240126, end: 20240216
  6. APRISO [Concomitant]
     Active Substance: MESALAMINE
     Indication: Colitis ulcerative
     Dosage: UNK UNK, QID
     Route: 048
     Dates: start: 20240216, end: 20240314

REACTIONS (2)
  - Insurance issue [Recovered/Resolved]
  - Product use issue [Recovering/Resolving]
